FAERS Safety Report 10892248 (Version 5)
Quarter: 2015Q2

REPORT INFORMATION
  Report Type: Spontaneous
  Country: JP (occurrence: JP)
  Receive Date: 20150306
  Receipt Date: 20150408
  Transmission Date: 20150821
  Serious: Yes (Death, Other)
  Sender: FDA-Public Use
  Company Number: JP-SA-2015SA018387

PATIENT
  Sex: Male

DRUGS (20)
  1. AMARYL [Suspect]
     Active Substance: GLIMEPIRIDE
     Indication: DIABETES MELLITUS
     Route: 048
     Dates: start: 20140515, end: 20150127
  2. SERMION [Concomitant]
     Active Substance: NICERGOLINE
  3. NORVASC [Concomitant]
     Active Substance: AMLODIPINE BESYLATE
  4. BASEN [Suspect]
     Active Substance: VOGLIBOSE
     Indication: DIABETES MELLITUS
     Dates: start: 20120412, end: 20150127
  5. AMARYL [Suspect]
     Active Substance: GLIMEPIRIDE
     Indication: DIABETES MELLITUS
     Dosage: DOSE:(4 TABLETS IN THE MORNING AND 1 TABLET AT NOON)
     Route: 048
     Dates: start: 20140404
  6. MUCOSTA [Concomitant]
     Active Substance: REBAMIPIDE
     Indication: SPINAL COMPRESSION FRACTURE
     Dates: start: 20150120
  7. CONTOMIN [Concomitant]
     Active Substance: CHLORPROMAZINE
  8. EQUA [Suspect]
     Active Substance: VILDAGLIPTIN
     Indication: DIABETES MELLITUS
  9. EQUA [Suspect]
     Active Substance: VILDAGLIPTIN
     Indication: DIABETES MELLITUS
     Dosage: 50-100 MG/DAY
     Dates: start: 20120223
  10. EQUA [Suspect]
     Active Substance: VILDAGLIPTIN
     Indication: DIABETES MELLITUS
     Dates: start: 20120301
  11. METGLUCO [Concomitant]
     Active Substance: METFORMIN HYDROCHLORIDE
     Dates: end: 20120412
  12. REMINYL /UNK/ [Concomitant]
  13. ACTOS [Concomitant]
     Active Substance: PIOGLITAZONE HYDROCHLORIDE
     Dates: start: 20130110, end: 201404
  14. AZILVA [Concomitant]
     Active Substance: AZILSARTAN KAMEDOXOMIL
  15. APLEWAY [Suspect]
     Active Substance: TOFOGLIFLOZIN
     Indication: DIABETES MELLITUS
     Dosage: 20MG
     Route: 048
     Dates: start: 20141128, end: 20150127
  16. AMARYL [Suspect]
     Active Substance: GLIMEPIRIDE
     Indication: DIABETES MELLITUS
     Dosage: DOSE: 2-5 MG QD
     Route: 048
     Dates: start: 20120412
  17. ATENOLOL. [Concomitant]
     Active Substance: ATENOLOL
  18. LOXOMARIN [Concomitant]
     Active Substance: LOXOPROFEN
     Indication: SPINAL COMPRESSION FRACTURE
     Route: 048
     Dates: start: 20150120
  19. AMARYL [Suspect]
     Active Substance: GLIMEPIRIDE
     Indication: DIABETES MELLITUS
     Dosage: DOSE:(2 TABLETS IN THE MORNING, 1 TABLET AT NOON, AND 1 TABLET AT NIGHT)
     Route: 048
  20. DAONIL [Concomitant]
     Active Substance: GLYBURIDE
     Dates: end: 20120412

REACTIONS (6)
  - Hyperglycaemia [Unknown]
  - Dyspnoea [Unknown]
  - Diarrhoea [Recovered/Resolved]
  - Pneumonia aspiration [Fatal]
  - Altered state of consciousness [Not Recovered/Not Resolved]
  - Hypoglycaemia [Recovered/Resolved]

NARRATIVE: CASE EVENT DATE: 201501
